FAERS Safety Report 5853153-2 (Version None)
Quarter: 2008Q3

REPORT INFORMATION
  Report Type: 
  Country: None (occurrence: None)
  Receive Date: 20080818
  Receipt Date: 20080611
  Transmission Date: 20090109
  Serious: No
  Sender: FDA-Public Use
  Company Number: WAES 0806USA02241

PATIENT
  Age: 81 Year
  Sex: Female

DRUGS (2)
  1. JANUVIA [Suspect]
     Indication: DIABETES MELLITUS
     Dosage: PO ; 100 MG/PO
     Route: 048
  2. AVANDAMET [Concomitant]

REACTIONS (2)
  - BLOOD GLUCOSE DECREASED [None]
  - WEIGHT INCREASED [None]
